FAERS Safety Report 7164519-5 (Version None)
Quarter: 2010Q4

REPORT INFORMATION
  Report Type: 
  Country: None (occurrence: None)
  Receive Date: 20101215
  Receipt Date: 20101209
  Transmission Date: 20110411
  Serious: Yes (Life-Threatening, Hospitalization, Other)
  Sender: FDA-Public Use
  Company Number: DE-ASTRAZENECA-2010SE58903

PATIENT
  Age: 80 Year
  Sex: Female
  Weight: 75 kg

DRUGS (7)
  1. OMEPRAZOLE [Suspect]
     Route: 048
     Dates: start: 20090427, end: 20100812
  2. RAMIPRIL [Suspect]
     Route: 048
     Dates: start: 20090427, end: 20091210
  3. CITALOPRAM [Suspect]
     Route: 048
  4. CIPRAMIL [Suspect]
     Route: 048
  5. IBUPROFEN [Suspect]
     Route: 048
     Dates: start: 20091211, end: 20100303
  6. IBUPROFEN [Suspect]
     Route: 048
     Dates: start: 20100304, end: 20100806
  7. RAMIPRIL [Suspect]
     Route: 048
     Dates: start: 20091211, end: 20100812

REACTIONS (1)
  - RENAL FAILURE ACUTE [None]
